FAERS Safety Report 5757930-8 (Version None)
Quarter: 2008Q2

REPORT INFORMATION
  Report Type: 
  Country: None (occurrence: None)
  Receive Date: 20080602
  Receipt Date: 20080602
  Transmission Date: 20081010
  Serious: Yes (Other)
  Sender: FDA-Public Use
  Company Number: None

PATIENT
  Age: 41 Year
  Sex: Male
  Weight: 81.6475 kg

DRUGS (1)
  1. CLARITHROMYCIN [Suspect]
     Indication: SINUSITIS
     Dosage: 1 PILL -500 MG- EVERY 12 HOURS PO
     Route: 048
     Dates: start: 20080512, end: 20080522

REACTIONS (9)
  - ANOREXIA [None]
  - ANXIETY [None]
  - BURNING SENSATION [None]
  - DIARRHOEA [None]
  - DRY MOUTH [None]
  - INSOMNIA [None]
  - NIGHTMARE [None]
  - PHARMACEUTICAL PRODUCT COMPLAINT [None]
  - RASH [None]
